FAERS Safety Report 8834747 (Version 1)
Quarter: 2012Q4

REPORT INFORMATION
  Report Type: 
  Country: GB (occurrence: GB)
  Receive Date: 20121010
  Receipt Date: 20121010
  Transmission Date: 20130627
  Serious: Yes (Other)
  Sender: FDA-Public Use
  Company Number: GB-JNJFOC-20120907391

PATIENT
  Age: 56 Year
  Sex: Male

DRUGS (6)
  1. RISPERDAL [Suspect]
     Indication: HUNTINGTON^S DISEASE
     Route: 048
     Dates: start: 2004
  2. VENLAFAXINE [Concomitant]
     Route: 065
  3. TETRABENAZINE [Concomitant]
     Route: 065
  4. NYSTATIN [Concomitant]
     Route: 065
  5. LAXIDO [Concomitant]
     Route: 065
  6. DIAZEPAM [Concomitant]
     Route: 065

REACTIONS (1)
  - Medication residue [Not Recovered/Not Resolved]
